FAERS Safety Report 6033501-3 (Version None)
Quarter: 2009Q1

REPORT INFORMATION
  Report Type: 
  Country: None (occurrence: None)
  Receive Date: 20090109
  Receipt Date: 20081224
  Transmission Date: 20090719
  Serious: No
  Sender: FDA-Public Use
  Company Number: US-B.I. PHARMACEUTICALS,INC./RIDGEFIELD-2008-BP-19111BP

PATIENT
  Age: 72 Year
  Sex: Male

DRUGS (4)
  1. ATROVENT HFA [Suspect]
     Indication: CHRONIC OBSTRUCTIVE PULMONARY DISEASE
     Dosage: 408MCG
     Route: 055
  2. SPIRIVA [Concomitant]
  3. SYMBICORT [Concomitant]
  4. ALBUTEROL [Concomitant]

REACTIONS (3)
  - DECREASED BRONCHIAL SECRETION [None]
  - INCORRECT DOSE ADMINISTERED [None]
  - PEAK EXPIRATORY FLOW RATE DECREASED [None]
